FAERS Safety Report 16024827 (Version 1)
Quarter: 2019Q1

REPORT INFORMATION
  Report Type: Spontaneous
  Country: US (occurrence: US)
  Receive Date: 20190301
  Receipt Date: 20190301
  Transmission Date: 20190418
  Serious: No
  Sender: FDA-Public Use
  Company Number: US-TAKEDA-2019TUS010519

PATIENT
  Sex: Female

DRUGS (1)
  1. ENTYVIO [Suspect]
     Active Substance: VEDOLIZUMAB
     Indication: COLITIS ULCERATIVE
     Dosage: UNK
     Route: 042
     Dates: start: 2014

REACTIONS (4)
  - Eye swelling [Recovering/Resolving]
  - Rash pruritic [Recovering/Resolving]
  - Colitis ulcerative [Not Recovered/Not Resolved]
  - Swelling face [Recovering/Resolving]
